FAERS Safety Report 10992016 (Version 2)
Quarter: 2015Q2

REPORT INFORMATION
  Report Type: Spontaneous
  Country: US (occurrence: US)
  Receive Date: 20150406
  Receipt Date: 20150525
  Transmission Date: 20150821
  Serious: Yes (Other)
  Sender: FDA-Public Use
  Company Number: US-JNJFOC-20140914347

PATIENT
  Sex: Female

DRUGS (1)
  1. REMICADE [Suspect]
     Active Substance: INFLIXIMAB
     Indication: CROHN^S DISEASE
     Route: 042
     Dates: start: 20140411

REACTIONS (11)
  - White blood cell count decreased [Unknown]
  - Activities of daily living impaired [Unknown]
  - Asthenia [Unknown]
  - Apathy [Unknown]
  - Dizziness [Unknown]
  - Neutrophil count decreased [Unknown]
  - Monocyte count decreased [Unknown]
  - Memory impairment [Unknown]
  - Platelet count decreased [Unknown]
  - Cognitive disorder [Unknown]
  - Language disorder [Unknown]
